FAERS Safety Report 8907814 (Version 1)
Quarter: 2012Q4

REPORT INFORMATION
  Report Type: 
  Country: US (occurrence: US)
  Receive Date: 20121113
  Receipt Date: 20121113
  Transmission Date: 20130627
  Serious: No
  Sender: FDA-Public Use
  Company Number: US-AMGEN-USASP2012039487

PATIENT
  Age: 49 Year
  Sex: Male

DRUGS (3)
  1. ENBREL [Suspect]
     Indication: PRODUCT USED FOR UNKNOWN INDICATION
     Dosage: 50 mg/ml, qwk
     Route: 058
  2. ACYCLOVIR                          /00587301/ [Concomitant]
     Dosage: 200 mg, UNK
  3. SULFASALAZIN [Concomitant]
     Dosage: 500 mg, UNK

REACTIONS (1)
  - Injection site reaction [Unknown]
